FAERS Safety Report 6013137-0 (Version None)
Quarter: 2008Q4

REPORT INFORMATION
  Report Type: 
  Country: None (occurrence: None)
  Receive Date: 20081219
  Receipt Date: 20081211
  Transmission Date: 20090506
  Serious: Yes (Other)
  Sender: FDA-Public Use
  Company Number: CA-BIOGENIDEC-2008BI031861

PATIENT
  Age: 52 Year
  Sex: Female

DRUGS (2)
  1. TYSABRI [Suspect]
     Indication: MULTIPLE SCLEROSIS
     Route: 042
     Dates: start: 20081112
  2. TYSABRI [Suspect]
     Route: 042
     Dates: start: 20070525, end: 20080523

REACTIONS (3)
  - CONVULSION [None]
  - HEADACHE [None]
  - MUSCLE SPASMS [None]
